FAERS Safety Report 23148286 (Version 1)
Quarter: 2023Q4

REPORT INFORMATION
  Report Type: Spontaneous
  Country: US (occurrence: US)
  Receive Date: 20231106
  Receipt Date: 20231106
  Transmission Date: 20240110
  Serious: No
  Sender: FDA-Public Use
  Company Number: US-SUN PHARMACEUTICAL INDUSTRIES LTD-2022R1-360306

PATIENT
  Sex: Female

DRUGS (2)
  1. KENALOG [Suspect]
     Active Substance: TRIAMCINOLONE ACETONIDE
     Indication: Rash erythematous
     Dosage: UNK
     Route: 065
  2. PROTOPIC [Suspect]
     Active Substance: TACROLIMUS
     Indication: Rash erythematous
     Dosage: UNK
     Route: 061

REACTIONS (1)
  - Treatment failure [Unknown]
